FAERS Safety Report 20984671 (Version 1)
Quarter: 2022Q2

REPORT INFORMATION
  Report Type: Other
  Country: US (occurrence: None)
  Receive Date: 20220621
  Receipt Date: 20220621
  Transmission Date: 20220720
  Serious: No
  Sender: FDA-Public Use
  Company Number: US-ROCHE-2953919

PATIENT
  Age: 69 Year
  Sex: Male

DRUGS (10)
  1. CAPECITABINE [Suspect]
     Active Substance: CAPECITABINE
     Indication: Neuroendocrine carcinoma
     Dosage: ON DAYS 1 TO 14 OF A 28-DAY CYCLE
     Route: 065
     Dates: start: 201601, end: 201611
  2. TEMOZOLOMIDE [Suspect]
     Active Substance: TEMOZOLOMIDE
     Indication: Neuroendocrine carcinoma
     Dosage: ON DAYS 10 THROUGH 14 OF A 28-DAY CYCLE
     Route: 065
     Dates: start: 201601, end: 201611
  3. LANREOTIDE [Suspect]
     Active Substance: LANREOTIDE
     Indication: Neuroendocrine carcinoma
     Route: 065
     Dates: start: 201601, end: 201611
  4. SOMATOSTATIN [Concomitant]
     Active Substance: SOMATOSTATIN
  5. INSULIN NOS [Concomitant]
     Active Substance: INSULIN NOS
     Indication: Hypoglycaemia
  6. FLUOROURACIL [Concomitant]
     Active Substance: FLUOROURACIL
     Dosage: 2,400 MG INTRAVENOUS INFUSION OVER 2 DAYS
     Route: 042
  7. LEUCOVORIN [Concomitant]
     Active Substance: LEUCOVORIN
  8. OXALIPLATIN [Concomitant]
     Active Substance: OXALIPLATIN
  9. IPILIMUMAB [Concomitant]
     Active Substance: IPILIMUMAB
     Dosage: 30 MINUTES DAILY ON DAY 1
  10. NIVOLUMAB [Concomitant]
     Active Substance: NIVOLUMAB

REACTIONS (1)
  - Disease progression [Unknown]
